FAERS Safety Report 11541652 (Version 1)
Quarter: 2015Q3

REPORT INFORMATION
  Report Type: Spontaneous
  Country: US (occurrence: US)
  Receive Date: 20150923
  Receipt Date: 20150923
  Transmission Date: 20151125
  Serious: No
  Sender: FDA-Public Use
  Company Number: US-WATSON-2014-27885

PATIENT
  Age: 68 Year
  Sex: Male

DRUGS (1)
  1. TESTOSTERONE CYPIONATE (WATSON LABORATORIES) [Suspect]
     Active Substance: TESTOSTERONE CYPIONATE
     Indication: BLOOD TESTOSTERONE DECREASED
     Dosage: 1.5 ML, 1/WEEK
     Route: 030
     Dates: start: 20141207

REACTIONS (5)
  - Acne [Recovered/Resolved]
  - Injection site erythema [Recovered/Resolved]
  - Furuncle [Recovered/Resolved]
  - Feeling abnormal [Recovered/Resolved]
  - Injection site pain [Recovered/Resolved]

NARRATIVE: CASE EVENT DATE: 20141207
